FAERS Safety Report 24735149 (Version 6)
Quarter: 2025Q1

REPORT INFORMATION
  Report Type: Spontaneous
  Country: JP (occurrence: JP)
  Receive Date: 20241215
  Receipt Date: 20250219
  Transmission Date: 20250408
  Serious: Yes (Death, Life-Threatening, Hospitalization, Other)
  Sender: TAKEDA
  Company Number: JP-TAKEDA-2024TJP017075

PATIENT
  Age: 78 Year
  Sex: Male
  Weight: 55 kg

DRUGS (7)
  1. FRUZAQLA [Suspect]
     Active Substance: FRUQUINTINIB
     Indication: Colon cancer
     Dosage: 5 MILLIGRAM, QD
     Dates: start: 20241127, end: 20241208
  2. OXYCODONE [Suspect]
     Active Substance: OXYCODONE
     Indication: Cancer pain
     Dosage: 5 MILLIGRAM, BID
     Dates: start: 20241120, end: 20241208
  3. VONOPRAZAN FUMARATE [Concomitant]
     Active Substance: VONOPRAZAN FUMARATE
     Dosage: 10 MILLIGRAM, QD
     Dates: start: 20210729, end: 20241208
  4. NAPROXEN SODIUM [Concomitant]
     Active Substance: NAPROXEN SODIUM
     Dosage: 100 MILLIGRAM, TID
     Dates: start: 20240918, end: 20241208
  5. HERBALS [Concomitant]
     Active Substance: HERBALS
     Dosage: 2.5 GRAM, TID
     Dates: start: 20240925, end: 20241208
  6. MAGNESIUM OXIDE [Concomitant]
     Active Substance: MAGNESIUM OXIDE
     Dosage: 660 MILLIGRAM, BID
     Dates: start: 20241120, end: 20241208
  7. AMLODIPINE [Concomitant]
     Active Substance: AMLODIPINE BESYLATE
     Dosage: 5 MILLIGRAM, QD
     Dates: start: 20241127, end: 20241208

REACTIONS (10)
  - Altered state of consciousness [Fatal]
  - Colon cancer [Fatal]
  - General physical health deterioration [Unknown]
  - Disseminated intravascular coagulation [Unknown]
  - Melaena [Unknown]
  - Posterior reversible encephalopathy syndrome [Unknown]
  - Blood pressure increased [Recovering/Resolving]
  - Gastrointestinal haemorrhage [Unknown]
  - Hypophagia [Fatal]
  - Abdominal pain [Unknown]

NARRATIVE: CASE EVENT DATE: 20241208
